FAERS Safety Report 22230708 (Version 1)
Quarter: 2023Q2

REPORT INFORMATION
  Report Type: Spontaneous
  Country: CN (occurrence: CN)
  Receive Date: 20230420
  Receipt Date: 20230420
  Transmission Date: 20230721
  Serious: Yes (Hospitalization, Other)
  Sender: FDA-Public Use
  Company Number: CN-BRISTOL-MYERS SQUIBB COMPANY-2023-055143

PATIENT
  Age: 30 Year
  Sex: Male

DRUGS (3)
  1. EFAVIRENZ [Suspect]
     Active Substance: EFAVIRENZ
     Indication: Acquired immunodeficiency syndrome
  2. TENOFOVIR DISOPROXIL FUMARATE [Suspect]
     Active Substance: TENOFOVIR DISOPROXIL FUMARATE
     Indication: Acquired immunodeficiency syndrome
  3. LAMIVUDINE [Suspect]
     Active Substance: LAMIVUDINE
     Indication: Acquired immunodeficiency syndrome

REACTIONS (3)
  - Hypothyroidism [Recovered/Resolved]
  - Blood creatinine increased [Recovered/Resolved]
  - Obesity [Recovering/Resolving]

NARRATIVE: CASE EVENT DATE: 20210101
